FAERS Safety Report 10836032 (Version 2)
Quarter: 2018Q1

REPORT INFORMATION
  Report Type: Report from Study
  Country: US (occurrence: US)
  Receive Date: 20150219
  Receipt Date: 20180228
  Transmission Date: 20180508
  Serious: Yes (Hospitalization)
  Sender: FDA-Public Use
  Company Number: US-ACTELION-A-NJ2015-112918

PATIENT
  Age: 23 Year
  Sex: Female

DRUGS (5)
  1. MELATONIN [Concomitant]
     Active Substance: MELATONIN
     Dosage: 3 MG, QPM
     Dates: start: 20130207
  2. ZAVESCA [Suspect]
     Active Substance: MIGLUSTAT
     Indication: GAUCHER^S DISEASE
     Dosage: 100 MG, TID
     Route: 048
     Dates: start: 20130206
  3. JOLESSA [Concomitant]
     Active Substance: ETHINYL ESTRADIOL\LEVONORGESTREL
     Dosage: 0.15 MG, QD
     Dates: start: 20130207
  4. METOPROLOL. [Concomitant]
     Active Substance: METOPROLOL
     Dosage: 0.5 TAB BID
     Route: 048
     Dates: start: 20180220
  5. DIVALPROEX [Concomitant]
     Active Substance: DIVALPROEX SODIUM
     Dosage: 1 DOSE BID
     Route: 048
     Dates: start: 20170123

REACTIONS (2)
  - Pneumonia aspiration [Unknown]
  - Pneumonia [Recovered/Resolved]
